FAERS Safety Report 18142592 (Version 1)
Quarter: 2020Q3

REPORT INFORMATION
  Report Type: Spontaneous
  Country: US (occurrence: US)
  Receive Date: 20200812
  Receipt Date: 20200812
  Transmission Date: 20201103
  Serious: Yes (Life-Threatening, Hospitalization, Other)
  Sender: FDA-Public Use
  Company Number: US-009507513-2008USA004923

PATIENT
  Age: 21 Year
  Sex: Female

DRUGS (2)
  1. NUVARING [Suspect]
     Active Substance: ETHINYL ESTRADIOL\ETONOGESTREL
     Dosage: UNK
     Route: 067
     Dates: start: 2016, end: 201605
  2. NUVARING [Suspect]
     Active Substance: ETHINYL ESTRADIOL\ETONOGESTREL
     Indication: CONTRACEPTION
     Dosage: UNK
     Route: 067
     Dates: start: 2015

REACTIONS (8)
  - Vaginal infection [Recovered/Resolved]
  - Lemierre syndrome [Recovered/Resolved]
  - Female condom [Recovered/Resolved]
  - Pneumothorax [Recovered/Resolved]
  - Lung disorder [Recovered/Resolved]
  - Thrombosis [Recovered/Resolved]
  - Complication associated with device [Unknown]
  - Pulmonary oedema [Recovered/Resolved]

NARRATIVE: CASE EVENT DATE: 201601
